FAERS Safety Report 6591172-1 (Version None)
Quarter: 2010Q1

REPORT INFORMATION
  Report Type: 
  Country: None (occurrence: None)
  Receive Date: 20100219
  Receipt Date: 20100211
  Transmission Date: 20100710
  Serious: Yes (Other)
  Sender: FDA-Public Use
  Company Number: US-ROCHE-685284

PATIENT
  Age: 73 Year
  Sex: Female

DRUGS (4)
  1. AVASTIN [Suspect]
     Dosage: DATES GIVEN AS 2 WEEKS AGO(SECOND DOSE), FORM INFUSION.
     Route: 042
  2. LISINOPRIL [Concomitant]
  3. HYDROCHLOROTHIAZIDE [Concomitant]
  4. TRIAMTERENE [Concomitant]

REACTIONS (5)
  - APHASIA [None]
  - ASTHENIA [None]
  - HYPERTENSION [None]
  - HYPOAESTHESIA [None]
  - PARAESTHESIA ORAL [None]
